FAERS Safety Report 8294916 (Version 5)
Quarter: 2013Q2

REPORT INFORMATION
  Report Type: Spontaneous
  Country: JP (occurrence: JP)
  Receive Date: 20111216
  Receipt Date: 20130408
  Transmission Date: 20140414
  Serious: Yes (Hospitalization, Other)
  Sender: FDA-Public Use
  Company Number: JP-ABBOTT-11P-087-0882085-00

PATIENT
  Age: 30 Year
  Sex: Female

DRUGS (2)
  1. HUMIRA 40 MG/ 0.8 ML PRE-FILLED SYRINGE [Suspect]
     Indication: RHEUMATOID ARTHRITIS
     Route: 058
     Dates: start: 20100620, end: 20111111
  2. METHOTREXATE [Concomitant]
     Indication: RHEUMATOID ARTHRITIS
     Route: 048
     Dates: start: 20060601

REACTIONS (12)
  - Polyarteritis nodosa [Recovered/Resolved]
  - Rash [Unknown]
  - Rash [Unknown]
  - Rash [Recovering/Resolving]
  - Pain in extremity [Unknown]
  - Purpura [Recovering/Resolving]
  - Pain in extremity [Unknown]
  - Lymphadenopathy [Unknown]
  - Vasculitis [Unknown]
  - Autoimmune disorder [Unknown]
  - Collagen disorder [Unknown]
  - Henoch-Schonlein purpura [Unknown]
